FAERS Safety Report 6640787-0 (Version None)
Quarter: 2010Q1

REPORT INFORMATION
  Report Type: 
  Country: None (occurrence: None)
  Receive Date: 20100318
  Receipt Date: 20100308
  Transmission Date: 20100710
  Serious: Yes (Hospitalization)
  Sender: FDA-Public Use
  Company Number: DE-PFIZER INC-2007090075

PATIENT
  Age: 76 Year
  Sex: Male
  Weight: 70 kg

DRUGS (14)
  1. SUNITINIB MALATE [Suspect]
     Indication: METASTATIC RENAL CELL CARCINOMA
     Dosage: 25 MG, 1X/DAY
     Route: 048
     Dates: start: 20060404
  2. COAPROVEL [Concomitant]
     Indication: HYPERTENSION
     Dates: start: 19990101, end: 20070420
  3. CLOPIDOGREL [Concomitant]
     Indication: CORONARY ARTERY DISEASE
     Dates: start: 19990101
  4. MOXONIDINE [Concomitant]
     Indication: HYPERTENSION
     Dates: start: 19990101
  5. METOPROLOL TARTRATE [Concomitant]
     Indication: HYPERTENSION
     Dates: start: 19990101
  6. SIMVASTATIN [Concomitant]
     Indication: PROPHYLAXIS
     Dates: start: 19990101
  7. RAMIPRIL [Concomitant]
     Indication: CORONARY ARTERY DISEASE
     Dates: start: 19990101
  8. PANTOPRAZOL [Concomitant]
     Indication: PROPHYLAXIS
     Dates: start: 20060410
  9. ALLOPURINOL [Concomitant]
     Indication: HYPERURICAEMIA
     Dates: start: 20070509
  10. PERENTEROL [Concomitant]
     Indication: DIARRHOEA
     Dates: start: 20060626
  11. LOPERAMIDE [Concomitant]
     Indication: DIARRHOEA
     Dates: start: 20060626
  12. TORASEMIDE [Concomitant]
     Indication: BLOOD UREA INCREASED
     Dates: start: 20070420, end: 20070508
  13. IRBESARTAN [Concomitant]
     Indication: HYPERTENSION
     Dates: start: 20070421
  14. NIFEDIPINE [Concomitant]
     Indication: HYPERTENSION
     Dates: start: 20071023, end: 20071023

REACTIONS (2)
  - DYSPNOEA [None]
  - PLEURAL EFFUSION [None]
